FAERS Safety Report 5074702-0 (Version None)
Quarter: 2006Q3

REPORT INFORMATION
  Report Type: 
  Country: None (occurrence: None)
  Receive Date: 20060803
  Receipt Date: 20060717
  Transmission Date: 20061208
  Serious: Yes (Death)
  Sender: FDA-Public Use
  Company Number: US200607002963

PATIENT
  Age: 48 Year
  Sex: Male

DRUGS (9)
  1. CYMBALTA [Suspect]
  2. THORAZINE [Concomitant]
  3. NEXIUM [Concomitant]
  4. IBUPROFEN [Concomitant]
  5. ALBUTEROL [Concomitant]
  6. MIRALAX [Concomitant]
  7. SYNTHROID (LEOVTHYROXINE SODIUM) [Concomitant]
  8. TARKA (TANDOLAPRIL, VERAPAMIL HYDROCHLORIDE) [Concomitant]
  9. METHADONE HCL [Concomitant]

REACTIONS (1)
  - SUDDEN DEATH [None]
